FAERS Safety Report 11517131 (Version 1)
Quarter: 2015Q3

REPORT INFORMATION
  Report Type: Spontaneous
  Country: US (occurrence: US)
  Receive Date: 20150917
  Receipt Date: 20150917
  Transmission Date: 20151125
  Serious: Yes (Hospitalization, Other)
  Sender: FDA-Public Use
  Company Number: US-GLAXOSMITHKLINE-US2014GSK037311

PATIENT
  Age: 88 Year
  Sex: Male

DRUGS (1)
  1. ACYCLOVIR. [Suspect]
     Active Substance: ACYCLOVIR
     Dosage: 10 MG/KG, UNK

REACTIONS (11)
  - Encephalitis [Unknown]
  - Nephropathy toxic [Unknown]
  - Confusional state [Unknown]
  - Malaise [Unknown]
  - Dehydration [Unknown]
  - Asthenia [Unknown]
  - Neurotoxicity [Unknown]
  - Meningoencephalitis herpetic [Unknown]
  - Hypophagia [Unknown]
  - Gait disturbance [Unknown]
  - Pyrexia [Unknown]
